FAERS Safety Report 7538391-5 (Version None)
Quarter: 2011Q2

REPORT INFORMATION
  Report Type: 
  Country: None (occurrence: None)
  Receive Date: 20110609
  Receipt Date: 20110525
  Transmission Date: 20111010
  Serious: Yes (Other)
  Sender: FDA-Public Use
  Company Number: ES-WATSON-2011-07288

PATIENT
  Age: 64 Year
  Sex: Male

DRUGS (1)
  1. RAPAFLO [Suspect]
     Indication: BENIGN PROSTATIC HYPERPLASIA
     Dosage: 8 MG CAPSULE ONCE A DAY
     Route: 048
     Dates: start: 20110322, end: 20110504

REACTIONS (3)
  - SLEEP DISORDER [None]
  - DIARRHOEA [None]
  - ERECTILE DYSFUNCTION [None]
